FAERS Safety Report 6240654-0 (Version None)
Quarter: 2009Q2

REPORT INFORMATION
  Report Type: 
  Country: None (occurrence: None)
  Receive Date: 20090623
  Receipt Date: 20081202
  Transmission Date: 20091009
  Serious: No
  Sender: FDA-Public Use
  Company Number: US-ASTRAZENECA-2008UW26873

PATIENT
  Age: 3 Year
  Sex: Female

DRUGS (6)
  1. PULMICORT RESPULES [Suspect]
     Indication: ASTHMA
     Route: 055
  2. PREVACID [Concomitant]
  3. VERAMYST [Concomitant]
  4. MIRALAX [Concomitant]
  5. BENEFIBER [Concomitant]
  6. ALBUTEROL [Concomitant]

REACTIONS (2)
  - GASTROENTERITIS VIRAL [None]
  - RESPIRATORY SYNCYTIAL VIRUS INFECTION [None]
